FAERS Safety Report 9974470 (Version 1)
Quarter: 2014Q1

REPORT INFORMATION
  Report Type: Spontaneous
  Country: US (occurrence: US)
  Receive Date: 20140306
  Receipt Date: 20140306
  Transmission Date: 20141002
  Serious: No
  Sender: FDA-Public Use
  Company Number: US-ABBVIE-13P-163-1157084-00

PATIENT
  Age: 46 Year
  Sex: Male
  Weight: 83.08 kg

DRUGS (2)
  1. HUMIRA [Suspect]
     Indication: PSORIASIS
     Dates: start: 20130816, end: 20130816
  2. HUMIRA [Suspect]
     Dates: start: 20130823

REACTIONS (3)
  - Oropharyngeal pain [Not Recovered/Not Resolved]
  - Fatigue [Not Recovered/Not Resolved]
  - Facial pain [Not Recovered/Not Resolved]
